FAERS Safety Report 25372369 (Version 2)
Quarter: 2025Q2

REPORT INFORMATION
  Report Type: Spontaneous
  Country: HR (occurrence: HR)
  Receive Date: 20250529
  Receipt Date: 20250610
  Transmission Date: 20250717
  Serious: Yes (Hospitalization)
  Sender: TEVA
  Company Number: HR-TEVA-VS-3334747

PATIENT
  Age: 5 Year
  Sex: Male

DRUGS (13)
  1. MELPHALAN [Suspect]
     Active Substance: MELPHALAN
     Indication: Retinoblastoma
     Route: 013
     Dates: start: 202209, end: 202209
  2. MELPHALAN [Suspect]
     Active Substance: MELPHALAN
     Indication: Retinoblastoma
     Route: 013
     Dates: start: 202204, end: 202204
  3. MELPHALAN [Suspect]
     Active Substance: MELPHALAN
     Indication: Retinoblastoma
     Route: 013
     Dates: start: 202205, end: 202205
  4. MELPHALAN [Suspect]
     Active Substance: MELPHALAN
     Indication: Retinoblastoma
     Route: 050
     Dates: start: 202203, end: 202203
  5. MELPHALAN [Suspect]
     Active Substance: MELPHALAN
     Indication: Retinoblastoma
     Route: 013
     Dates: start: 202210, end: 202210
  6. MELPHALAN [Suspect]
     Active Substance: MELPHALAN
     Indication: Retinoblastoma
     Route: 050
     Dates: start: 202205, end: 202205
  7. MELPHALAN [Suspect]
     Active Substance: MELPHALAN
     Indication: Retinoblastoma
     Route: 050
     Dates: start: 202204, end: 202204
  8. INDOCYANINE GREEN [Concomitant]
     Active Substance: INDOCYANINE GREEN
     Indication: Retinoblastoma
     Route: 065
     Dates: start: 202303, end: 202303
  9. INDOCYANINE GREEN [Concomitant]
     Active Substance: INDOCYANINE GREEN
     Indication: Retinoblastoma
     Route: 065
     Dates: start: 202302, end: 202302
  10. CARBOPLATIN [Suspect]
     Active Substance: CARBOPLATIN
     Indication: Retinoblastoma
     Route: 065
     Dates: start: 202203, end: 202203
  11. TOPOTECAN [Suspect]
     Active Substance: TOPOTECAN HYDROCHLORIDE
     Indication: Retinoblastoma
     Route: 013
     Dates: start: 202209, end: 202209
  12. TOPOTECAN [Suspect]
     Active Substance: TOPOTECAN HYDROCHLORIDE
     Indication: Retinoblastoma
     Route: 013
     Dates: start: 202210, end: 202210
  13. ETOPOSIDE [Suspect]
     Active Substance: ETOPOSIDE
     Indication: Retinoblastoma
     Route: 065
     Dates: start: 202203, end: 202203

REACTIONS (5)
  - Symblepharon [Recovered/Resolved]
  - Cyst [Recovered/Resolved]
  - Drug ineffective [Unknown]
  - Device extrusion [Unknown]
  - Staphylococcal infection [Recovering/Resolving]

NARRATIVE: CASE EVENT DATE: 20230101
